FAERS Safety Report 14704617 (Version 2)
Quarter: 2019Q2

REPORT INFORMATION
  Report Type: Spontaneous
  Country: US (occurrence: US)
  Receive Date: 20180402
  Receipt Date: 20190401
  Transmission Date: 20190711
  Serious: No
  Sender: FDA-Public Use
  Company Number: US-ELI_LILLY_AND_COMPANY-US201803003646

PATIENT
  Sex: Male

DRUGS (3)
  1. HUMATROPE [Suspect]
     Active Substance: SOMATROPIN
     Indication: GROWTH HORMONE DEFICIENCY
     Dosage: 1.4 MG, UNKNOWN
     Route: 065
     Dates: start: 2017
  2. HUMATROPE [Suspect]
     Active Substance: SOMATROPIN
     Dosage: 1.6 SEVEN TIMES A WEEK
     Route: 065
  3. HUMATROPE [Suspect]
     Active Substance: SOMATROPIN
     Indication: HYPOPITUITARISM
     Dosage: 1.2 MG, UNKNOWN
     Route: 065

REACTIONS (1)
  - Blood growth hormone increased [Not Recovered/Not Resolved]
